FAERS Safety Report 8621283-8 (Version None)
Quarter: 2012Q3

REPORT INFORMATION
  Report Type: 
  Country: None (occurrence: None)
  Receive Date: 20120824
  Receipt Date: 20120813
  Transmission Date: 20120928
  Serious: Yes (Hospitalization)
  Sender: FDA-Public Use
  Company Number: US-CUBIST-2012S1000686

PATIENT
  Age: 77 Year
  Sex: Male

DRUGS (1)
  1. CUBICIN [Suspect]
     Indication: STAPHYLOCOCCAL BACTERAEMIA

REACTIONS (2)
  - CARDIAC FAILURE ACUTE [None]
  - CARDIAC VALVE ABSCESS [None]
